FAERS Safety Report 5263350-5 (Version None)
Quarter: 2007Q1

REPORT INFORMATION
  Report Type: 
  Country: None (occurrence: None)
  Receive Date: 20070313
  Receipt Date: 20070306
  Transmission Date: 20070707
  Serious: Yes (Other)
  Sender: FDA-Public Use
  Company Number: GB-SP-2005-01697

PATIENT
  Age: 74 Year
  Sex: Male

DRUGS (1)
  1. IMMUCYST [Suspect]
     Indication: BLADDER TRANSITIONAL CELL CARCINOMA
     Route: 043

REACTIONS (1)
  - BODY TEMPERATURE FLUCTUATION [None]
